FAERS Safety Report 9832735 (Version 1)
Quarter: 2014Q1

REPORT INFORMATION
  Report Type: Spontaneous
  Country: ZA (occurrence: ZA)
  Receive Date: 20140121
  Receipt Date: 20140121
  Transmission Date: 20141002
  Serious: Yes (Other)
  Sender: FDA-Public Use
  Company Number: ZA-PFIZER INC-2014011537

PATIENT
  Age: 5 Year
  Sex: 0

DRUGS (6)
  1. PHENYTOIN [Suspect]
     Indication: GRAND MAL CONVULSION
     Dosage: 75 MG, 3X/DAY
  2. ETHOSUXIMIDE [Concomitant]
     Indication: CONVULSION
     Dosage: 250 MG, 2X/DAY
  3. PRIMIDONE [Concomitant]
     Indication: CONVULSION
     Dosage: 25 MG, 3X/DAY
  4. CLONAZEPAM [Concomitant]
     Indication: MYOCLONIC EPILEPSY
     Dosage: 1.25 MG, DAILY
  5. ACTH [Concomitant]
     Indication: INFANTILE SPASMS
     Dosage: 40 U/D
  6. ACTH [Concomitant]
     Indication: GRAND MAL CONVULSION

REACTIONS (12)
  - Toxicity to various agents [Unknown]
  - Anticonvulsant drug level above therapeutic [Unknown]
  - Choreoathetosis [Recovered/Resolved]
  - Confusional state [Unknown]
  - Dysarthria [Unknown]
  - Nystagmus [Unknown]
  - Grimacing [Unknown]
  - Dyskinesia [Unknown]
  - Infantile spasms [Unknown]
  - Dystonia [Unknown]
  - Ataxia [Unknown]
  - Gingival hyperplasia [Unknown]
